FAERS Safety Report 9257865 (Version 1)
Quarter: 2013Q2

REPORT INFORMATION
  Report Type: Spontaneous
  Country: US (occurrence: None)
  Receive Date: 20130424
  Receipt Date: 20130424
  Transmission Date: 20140414
  Serious: Yes (Other)
  Sender: FDA-Public Use
  Company Number: None

PATIENT
  Age: 1 Month
  Sex: Female
  Weight: 3.25 kg

DRUGS (1)
  1. ENFAMIL [Suspect]
     Indication: CHYLOTHORAX
     Dosage: 20 ML PER HOUR NG TUBE
     Dates: start: 20120920, end: 20120930

REACTIONS (1)
  - Vomiting [None]
